FAERS Safety Report 20981073 (Version 1)
Quarter: 2022Q2

REPORT INFORMATION
  Report Type: Spontaneous
  Country: US (occurrence: US)
  Receive Date: 20220620
  Receipt Date: 20220620
  Transmission Date: 20220721
  Serious: Yes (Other)
  Sender: FDA-Public Use
  Company Number: US-SA-SAC20220615002086

PATIENT
  Age: 63 Year
  Sex: Female

DRUGS (1)
  1. ZANTAC [Suspect]
     Active Substance: RANITIDINE HYDROCHLORIDE
     Indication: Gastric ulcer
     Dosage: UNK,QD
     Dates: start: 198301, end: 201901

REACTIONS (2)
  - Lung neoplasm malignant [Unknown]
  - Pancreatic carcinoma [Unknown]

NARRATIVE: CASE EVENT DATE: 20030101
